FAERS Safety Report 9325172 (Version 2)
Quarter: 2013Q2

REPORT INFORMATION
  Report Type: Spontaneous
  Country: US (occurrence: US)
  Receive Date: 20130603
  Receipt Date: 20130607
  Transmission Date: 20140414
  Serious: Yes (Other)
  Sender: FDA-Public Use
  Company Number: US-ROCHE-1231844

PATIENT
  Age: 43 Year
  Sex: Female
  Weight: 93.98 kg

DRUGS (5)
  1. PEGASYS [Suspect]
     Indication: CHRONIC HEPATITIS C
     Route: 058
     Dates: start: 20121129
  2. PEGASYS [Suspect]
     Dosage: DOSE REDUCED
     Route: 058
     Dates: start: 20130412
  3. RIBAVIRIN [Suspect]
     Indication: CHRONIC HEPATITIS C
     Route: 048
     Dates: start: 20121129
  4. RIBAVIRIN [Suspect]
     Dosage: DOSE REDUCED
     Route: 048
     Dates: start: 20130121
  5. TELAPREVIR [Suspect]
     Indication: CHRONIC HEPATITIS C
     Route: 048
     Dates: start: 20121129, end: 20130220

REACTIONS (4)
  - Thrombocytopenia [Unknown]
  - Anaemia [Unknown]
  - Neutropenia [Unknown]
  - Pancytopenia [Unknown]
